FAERS Safety Report 7318707-5 (Version None)
Quarter: 2011Q1

REPORT INFORMATION
  Report Type: 
  Country: None (occurrence: None)
  Receive Date: 20110228
  Receipt Date: 20110216
  Transmission Date: 20110831
  Serious: Yes (Death, Hospitalization)
  Sender: FDA-Public Use
  Company Number: JP-SANOFI-AVENTIS-2010SA032740

PATIENT
  Age: 58 Year
  Sex: Male
  Weight: 77 kg

DRUGS (19)
  1. KYTRIL [Concomitant]
     Indication: PREMEDICATION
     Route: 041
     Dates: start: 20100408, end: 20100507
  2. LOXOPROFEN [Concomitant]
     Indication: PROCTALGIA
     Route: 048
     Dates: start: 20100408, end: 20100507
  3. DEXAMETHASONE SODIUM PHOSPHATE [Concomitant]
     Indication: PREMEDICATION
     Route: 041
     Dates: start: 20100408, end: 20100507
  4. FAMOTIDINE [Concomitant]
     Indication: GASTRITIS PROPHYLAXIS
     Route: 048
     Dates: start: 20100316, end: 20100518
  5. PANTOSIN [Concomitant]
     Indication: CONSTIPATION
     Route: 048
     Dates: start: 20100408, end: 20100507
  6. CALCIUM LEVOFOLINATE [Suspect]
     Indication: RECTAL CANCER
     Route: 041
     Dates: start: 20100408, end: 20100408
  7. CALCIUM LEVOFOLINATE [Suspect]
     Route: 041
     Dates: start: 20100507, end: 20100507
  8. 5-FU [Suspect]
     Route: 040
     Dates: start: 20100507, end: 20100507
  9. MUCOSTA [Concomitant]
     Indication: GASTRITIS PROPHYLAXIS
     Route: 048
     Dates: start: 20100423, end: 20100518
  10. ELPLAT [Suspect]
     Route: 041
     Dates: start: 20100507, end: 20100507
  11. XYLOCAINE [Concomitant]
     Indication: PROCTALGIA
     Route: 048
     Dates: start: 20100316, end: 20100518
  12. ELPLAT [Suspect]
     Indication: RECTAL CANCER
     Route: 041
     Dates: start: 20100408, end: 20100408
  13. 5-FU [Suspect]
     Indication: RECTAL CANCER
     Route: 040
     Dates: start: 20100408, end: 20100408
  14. AVASTIN [Concomitant]
     Indication: RECTAL CANCER
     Route: 041
     Dates: start: 20100408, end: 20100408
  15. 5-FU [Suspect]
     Route: 041
     Dates: start: 20100507, end: 20100508
  16. MAGNESIUM OXIDE [Concomitant]
     Indication: CONSTIPATION
     Route: 048
     Dates: start: 20100316, end: 20100518
  17. 5-FU [Suspect]
     Route: 041
     Dates: start: 20100408, end: 20100409
  18. TERBINAFINE HYDROCHLORIDE [Concomitant]
     Indication: TINEA PEDIS
     Dates: start: 20100407, end: 20100518
  19. TAMSULOSIN HCL [Concomitant]
     Indication: DYSURIA
     Route: 048
     Dates: start: 20100507, end: 20100518

REACTIONS (2)
  - RENAL FAILURE [None]
  - ABDOMINAL DISTENSION [None]
